FAERS Safety Report 6925535-9 (Version None)
Quarter: 2010Q3

REPORT INFORMATION
  Report Type: 
  Country: None (occurrence: None)
  Receive Date: 20100810
  Receipt Date: 20100802
  Transmission Date: 20110219
  Serious: Yes (Other)
  Sender: FDA-Public Use
  Company Number: 2010SP041861

PATIENT
  Age: 32 Year
  Sex: Female
  Weight: 75.3 kg

DRUGS (3)
  1. NUVARING [Suspect]
     Indication: CONTRACEPTION
     Dosage: 120 MCG;QD;VAG
     Route: 067
     Dates: start: 20100423
  2. CITALOPRAM HYDROBROMIDE [Concomitant]
  3. ORTHO EVRA [Concomitant]

REACTIONS (1)
  - SWOLLEN TONGUE [None]
